FAERS Safety Report 23486276 (Version 3)
Quarter: 2024Q2

REPORT INFORMATION
  Report Type: Spontaneous
  Country: US (occurrence: None)
  Receive Date: 20240206
  Receipt Date: 20240509
  Transmission Date: 20240716
  Serious: No
  Sender: FDA-Public Use
  Company Number: 2024A025660

PATIENT
  Age: 85 Year
  Sex: Female
  Weight: 44 kg

DRUGS (1)
  1. BYDUREON BCISE [Suspect]
     Active Substance: EXENATIDE
     Dosage: 2.0MG UNKNOWN
     Route: 058

REACTIONS (4)
  - Gastric ulcer [Unknown]
  - Injection site haemorrhage [Unknown]
  - Device use issue [Unknown]
  - Device delivery system issue [Unknown]
